FAERS Safety Report 5956632-2 (Version None)
Quarter: 2008Q4

REPORT INFORMATION
  Report Type: 
  Country: None (occurrence: None)
  Receive Date: 20081118
  Receipt Date: 20081107
  Transmission Date: 20090506
  Serious: Yes (Hospitalization, Disabling)
  Sender: FDA-Public Use
  Company Number: US-MERCK-0705USA00816

PATIENT
  Age: 49 Year
  Sex: Female
  Weight: 71 kg

DRUGS (8)
  1. FOSAMAX [Suspect]
     Indication: OSTEOPOROSIS
     Route: 048
     Dates: start: 19980123, end: 20010625
  2. FOSAMAX [Suspect]
     Route: 048
     Dates: start: 20010625, end: 20030624
  3. FOSAMAX [Suspect]
     Route: 048
     Dates: start: 20040401, end: 20050804
  4. FOSAMAX [Suspect]
     Indication: OSTEOPENIA
     Route: 048
     Dates: start: 19980123, end: 20010625
  5. FOSAMAX [Suspect]
     Route: 048
     Dates: start: 20010625, end: 20030624
  6. FOSAMAX [Suspect]
     Route: 048
     Dates: start: 20040401, end: 20050804
  7. ESTROGENS (UNSPECIFIED) [Concomitant]
     Route: 065
     Dates: start: 19610101
  8. [THERAPY UNSPECIFIED] [Concomitant]
     Indication: DIABETES MELLITUS
     Route: 065
     Dates: start: 19960101

REACTIONS (38)
  - ABDOMINAL PAIN [None]
  - ADRENAL MASS [None]
  - ANXIETY [None]
  - AXILLARY PAIN [None]
  - BRONCHITIS [None]
  - CAROTID ARTERY DISEASE [None]
  - CATARACT [None]
  - CONTUSION [None]
  - COUGH [None]
  - DEHYDRATION [None]
  - DENTAL CARIES [None]
  - DEPRESSION [None]
  - FIBROADENOMA OF BREAST [None]
  - GASTRITIS VIRAL [None]
  - GASTROOESOPHAGEAL REFLUX DISEASE [None]
  - HYPERLIPIDAEMIA [None]
  - HYPERTENSION [None]
  - INSOMNIA [None]
  - MENOPAUSAL SYMPTOMS [None]
  - NAUSEA [None]
  - NEUROMA [None]
  - OSTEOMYELITIS [None]
  - OSTEONECROSIS [None]
  - OVARIAN CYST [None]
  - PARAESTHESIA [None]
  - PERIPHERAL VASCULAR DISORDER [None]
  - PNEUMONIA PRIMARY ATYPICAL [None]
  - RAYNAUD'S PHENOMENON [None]
  - RIB FRACTURE [None]
  - SEASONAL ALLERGY [None]
  - SINUS TACHYCARDIA [None]
  - STRESS URINARY INCONTINENCE [None]
  - TYPE 2 DIABETES MELLITUS [None]
  - UPPER LIMB FRACTURE [None]
  - URGE INCONTINENCE [None]
  - VOMITING [None]
  - WEIGHT DECREASED [None]
  - WEIGHT INCREASED [None]
